FAERS Safety Report 21980239 (Version 1)
Quarter: 2023Q1

REPORT INFORMATION
  Report Type: Spontaneous
  Country: DZ (occurrence: DZ)
  Receive Date: 20230210
  Receipt Date: 20230210
  Transmission Date: 20230418
  Serious: Yes (Other)
  Sender: FDA-Public Use
  Company Number: DZ-BAYER-2023A015636

PATIENT
  Sex: Female

DRUGS (2)
  1. EYLEA [Suspect]
     Active Substance: AFLIBERCEPT
     Indication: Retinal vein occlusion
     Dosage: 2 MG, SOLUTION FOR INJECTION, STRENGTH- 40MG/ML
     Route: 031
     Dates: start: 20200310
  2. TROMBIX [RIVAROXABAN] [Concomitant]
     Indication: Product used for unknown indication

REACTIONS (1)
  - Cystoid macular oedema [Recovered/Resolved]

NARRATIVE: CASE EVENT DATE: 20201209
